FAERS Safety Report 7207217-1 (Version None)
Quarter: 2011Q1

REPORT INFORMATION
  Report Type: 
  Country: None (occurrence: None)
  Receive Date: 20110103
  Receipt Date: 20101221
  Transmission Date: 20110831
  Serious: Yes (Hospitalization)
  Sender: FDA-Public Use
  Company Number: DE-ROCHE-749657

PATIENT
  Sex: Female
  Weight: 67 kg

DRUGS (6)
  1. PANTOPRAZOLE [Concomitant]
     Dates: start: 20100510
  2. CAPECITABINE [Suspect]
     Indication: BREAST CANCER
     Dosage: DATE OF LAST DOSE PRIOR TO SAE: 13 JULY 2010, PERMANENTLY DISCONTINUED ADMINISTERED DAYS 1-14
     Route: 048
     Dates: start: 20100629
  3. LORAZEPAM [Concomitant]
     Dosage: DOSE: 1/2 DOSEFORM/DAY
     Dates: start: 20100705
  4. GRANISETRON HCL [Concomitant]
     Dates: start: 20100720
  5. BEVACIZUMAB [Suspect]
     Indication: BREAST CANCER
     Dosage: DATE OF LAST DOSE PRIOR TO SAE: 29 JUN 2010, DOSE FORM: INFUSION DAY 1 EVERY 3 WEEKS
     Route: 042
     Dates: start: 20100629
  6. MCP [Concomitant]
     Dates: start: 20100602

REACTIONS (2)
  - PATHOLOGICAL FRACTURE [None]
  - CAUDA EQUINA SYNDROME [None]
